FAERS Safety Report 14438849 (Version 1)
Quarter: 2018Q1

REPORT INFORMATION
  Report Type: Spontaneous
  Country: DE (occurrence: DE)
  Receive Date: 20180125
  Receipt Date: 20180125
  Transmission Date: 20180509
  Serious: Yes (Hospitalization, Other)
  Sender: FDA-Public Use
  Company Number: DE-AUROBINDO-AUR-APL-2018-002715

PATIENT
  Age: 78 Year
  Sex: Female

DRUGS (38)
  1. DIAZEPAM. [Suspect]
     Active Substance: DIAZEPAM
     Indication: RESTLESSNESS
     Dosage: DOSAGE FORM: UNSPECIFIED, SINCE YEARS
     Route: 048
     Dates: start: 20140526, end: 20140528
  2. PIPAMPERON [Suspect]
     Active Substance: PIPAMPERONE HYDROCHLORIDE
     Dosage: DOSAGE FORM: UNSPECIFIED
     Route: 048
     Dates: start: 20140510, end: 20140513
  3. INSULIN [Concomitant]
     Active Substance: INSULIN NOS
     Indication: PRODUCT USED FOR UNKNOWN INDICATION
     Dosage: 60 IE SINCE YEARS
     Route: 058
  4. INSULIN [Concomitant]
     Active Substance: INSULIN NOS
     Dosage: DOSAGE FORM: UNSPECIFIED, 60 IE SINCE YEARS
  5. OPHTALMIN N [Concomitant]
     Indication: PRODUCT USED FOR UNKNOWN INDICATION
     Dosage: 1 DF, UNK
     Route: 065
  6. OPHTALMIN N [Concomitant]
     Dosage: DOSAGE FORM: UNSPECIFIED
     Route: 065
  7. MACROGOL [Concomitant]
     Active Substance: POLYETHYLENE GLYCOLS
     Indication: PRODUCT USED FOR UNKNOWN INDICATION
     Dosage: 1 DF, DAILY
     Route: 048
     Dates: start: 2011
  8. DIAZEPAM. [Suspect]
     Active Substance: DIAZEPAM
     Dosage: DOSAGE FORM: UNSPECIFIED, IN NIGHTS 26/27-MAY-2014 AND 27/28-MAY-2014 IN TOTAL 30 MG IN 26 HOURS ()
     Route: 030
  9. METAMIZOLE [Suspect]
     Active Substance: METAMIZOLE
     Dosage: DOSAGE FORM: UNSPECIFIED, 500-1000 MG
     Route: 048
     Dates: start: 20140517, end: 20140517
  10. METAMIZOLE [Suspect]
     Active Substance: METAMIZOLE
     Dosage: DOSAGE FORM: UNSPECIFIED
     Route: 048
     Dates: start: 20140526, end: 20140528
  11. AMLODIPINE [Concomitant]
     Active Substance: AMLODIPINE BESYLATE
     Indication: PRODUCT USED FOR UNKNOWN INDICATION
     Dosage: DOSAGE FORM: UNSPECIFIED
     Route: 048
     Dates: start: 2011
  12. FORMOTEROL [Concomitant]
     Active Substance: FORMOTEROL
     Indication: PRODUCT USED FOR UNKNOWN INDICATION
     Dosage: DOSAGE FORM: UNSPECIFIED, 1 PUFF
     Route: 065
     Dates: start: 201312
  13. VENLAFAXIN [Concomitant]
     Active Substance: VENLAFAXINE HYDROCHLORIDE
     Indication: PRODUCT USED FOR UNKNOWN INDICATION
     Dosage: DOSAGE FORM: UNSPECIFIED
     Route: 048
     Dates: start: 2012
  14. MIRTAZAPINE. [Suspect]
     Active Substance: MIRTAZAPINE
     Indication: PRODUCT USED FOR UNKNOWN INDICATION
     Dosage: DOSAGE FORM: UNSPECIFIED, SINCE YEARS
     Route: 048
  15. LISINOPRIL. [Suspect]
     Active Substance: LISINOPRIL
     Indication: PRODUCT USED FOR UNKNOWN INDICATION
     Dosage: DOSAGE FORM: UNSPECIFIED
     Route: 048
     Dates: start: 20140524
  16. ARIPIPRAZOLE. [Interacting]
     Active Substance: ARIPIPRAZOLE
     Indication: PRODUCT USED FOR UNKNOWN INDICATION
     Dosage: DOSAGE FORM: UNSPECIFIED
     Route: 048
     Dates: start: 20140508, end: 20140514
  17. DUROGESIC [Suspect]
     Active Substance: FENTANYL
     Indication: PRODUCT USED FOR UNKNOWN INDICATION
     Dosage: UNK
     Route: 062
     Dates: start: 2012
  18. METAMIZOLE [Suspect]
     Active Substance: METAMIZOLE
     Indication: PRODUCT USED FOR UNKNOWN INDICATION
     Dosage: DOSAGE FORM: UNSPECIFIED, 500-1000 MG ()
     Route: 048
     Dates: start: 20140502, end: 20140516
  19. SIMVASTATIN. [Concomitant]
     Active Substance: SIMVASTATIN
     Indication: PRODUCT USED FOR UNKNOWN INDICATION
     Dosage: DOSAGE FORM: UNSPECIFIED
     Route: 048
     Dates: start: 20140201
  20. RESONIUM [Concomitant]
     Active Substance: SODIUM POLYSTYRENE SULFONATE
     Indication: PRODUCT USED FOR UNKNOWN INDICATION
     Dosage: DOSAGE FORM: UNSPECIFIED, 2 TABLE SPOON ()
     Route: 048
     Dates: start: 20140528
  21. METAMIZOLE [Suspect]
     Active Substance: METAMIZOLE
     Dosage: DOSAGE FORM: UNSPECIFIED
     Route: 048
     Dates: start: 20140530
  22. PIPAMPERON [Suspect]
     Active Substance: PIPAMPERONE HYDROCHLORIDE
     Dosage: DOSAGE FORM: UNSPECIFIED
     Route: 048
     Dates: start: 20140515, end: 20140524
  23. PIPAMPERON [Suspect]
     Active Substance: PIPAMPERONE HYDROCHLORIDE
     Dosage: DOSAGE FORM: UNSPECIFIED
     Route: 048
     Dates: start: 20140527, end: 20140527
  24. CLOPIDOGREL [Concomitant]
     Active Substance: CLOPIDOGREL BISULFATE
     Indication: PRODUCT USED FOR UNKNOWN INDICATION
     Dosage: DOSAGE FORM: UNSPECIFIED
     Route: 048
     Dates: start: 2011
  25. FOLIC ACID. [Concomitant]
     Active Substance: FOLIC ACID
     Indication: PRODUCT USED FOR UNKNOWN INDICATION
     Dosage: DOSAGE FORM: UNSPECIFIED
     Route: 048
     Dates: start: 20140502
  26. PANTOPRAZOLE [Concomitant]
     Active Substance: PANTOPRAZOLE
     Indication: PRODUCT USED FOR UNKNOWN INDICATION
     Dosage: 40 MG, DAILY
     Route: 048
  27. METAMIZOLE [Suspect]
     Active Substance: METAMIZOLE
     Dosage: DOSAGE FORM: UNSPECIFIED
     Route: 048
     Dates: start: 20140522, end: 20140522
  28. STILNOX [Suspect]
     Active Substance: ZOLPIDEM TARTRATE
     Indication: PRODUCT USED FOR UNKNOWN INDICATION
     Dosage: DOSAGE FORM: UNSPECIFIED
     Route: 048
     Dates: start: 20140527
  29. ARIPIPRAZOLE. [Interacting]
     Active Substance: ARIPIPRAZOLE
     Dosage: DOSAGE FORM: UNSPECIFIED
     Route: 048
     Dates: start: 20140515, end: 20140520
  30. METAMIZOLE [Suspect]
     Active Substance: METAMIZOLE
     Dosage: DOSAGE FORM: UNSPECIFIED
     Route: 048
     Dates: start: 20140520, end: 20140521
  31. METAMIZOLE [Suspect]
     Active Substance: METAMIZOLE
     Dosage: DOSAGE FORM: UNSPECIFIED
     Route: 048
     Dates: start: 20140518, end: 20140519
  32. PIPAMPERON [Suspect]
     Active Substance: PIPAMPERONE HYDROCHLORIDE
     Indication: PRODUCT USED FOR UNKNOWN INDICATION
     Dosage: DOSAGE FORM: UNSPECIFIED
     Route: 048
     Dates: start: 20140508, end: 20140509
  33. PIPAMPERON [Suspect]
     Active Substance: PIPAMPERONE HYDROCHLORIDE
     Dosage: DOSAGE FORM: UNSPECIFIED
     Route: 048
     Dates: start: 20140528, end: 20140528
  34. DIAZEPAM. [Suspect]
     Active Substance: DIAZEPAM
     Dosage: DOSAGE FORM: UNSPECIFIED, IN NIGHTS 26/27-MAY-2014 AND 27/28-MAY-2014 IN TOTAL 30 MG IN 26 HOURS ()
     Route: 030
  35. METAMIZOLE [Suspect]
     Active Substance: METAMIZOLE
     Dosage: DOSAGE FORM: UNSPECIFIED
     Route: 048
     Dates: start: 20140523, end: 20140525
  36. PIPAMPERON [Suspect]
     Active Substance: PIPAMPERONE HYDROCHLORIDE
     Dosage: DOSAGE FORM: UNSPECIFIED
     Route: 048
     Dates: start: 20140525, end: 20140526
  37. PREDNISOLONE. [Concomitant]
     Active Substance: PREDNISOLONE
     Indication: PRODUCT USED FOR UNKNOWN INDICATION
     Dosage: DOSAGE FORM: UNSPECIFIED
     Route: 048
     Dates: start: 20140528
  38. PANTOPRAZOLE [Concomitant]
     Active Substance: PANTOPRAZOLE
     Dosage: DOSAGE FORM: UNSPECIFIED, SINCE YEARS

REACTIONS (14)
  - Drug interaction [Unknown]
  - Left ventricular hypertrophy [Unknown]
  - Fall [Unknown]
  - Diarrhoea [Unknown]
  - Loss of consciousness [Recovered/Resolved]
  - Myoclonus [Unknown]
  - Dysarthria [Unknown]
  - Rash [Unknown]
  - Syncope [Recovered/Resolved]
  - Pancytopenia [Recovered/Resolved]
  - Facial nerve disorder [Unknown]
  - Hypokalaemia [Unknown]
  - Restlessness [Unknown]
  - Prescribed underdose [Unknown]

NARRATIVE: CASE EVENT DATE: 20140519
